FAERS Safety Report 6059242-4 (Version None)
Quarter: 2009Q1

REPORT INFORMATION
  Report Type: 
  Country: None (occurrence: None)
  Receive Date: 20090128
  Receipt Date: 20090128
  Transmission Date: 20090719
  Serious: Yes (Hospitalization)
  Sender: FDA-Public Use
  Company Number: None

PATIENT
  Sex: Female
  Weight: 77.1115 kg

DRUGS (2)
  1. TAXOTERE [Suspect]
     Indication: BREAST CANCER
     Dosage: 160MG Q3 WEEKS IV DRIP
     Route: 041
     Dates: start: 20090102, end: 20090102
  2. TAXOTERE [Suspect]
     Dosage: STOPPED AFTER A FEW MINUTES
     Dates: start: 20090123, end: 20090123

REACTIONS (4)
  - DYSPNOEA [None]
  - ERYTHEMA [None]
  - FLUSHING [None]
  - INFUSION RELATED REACTION [None]
